FAERS Safety Report 15947848 (Version 2)
Quarter: 2019Q1

REPORT INFORMATION
  Report Type: Spontaneous
  Country: DE (occurrence: DE)
  Receive Date: 20190212
  Receipt Date: 20190305
  Transmission Date: 20190417
  Serious: Yes (Other)
  Sender: FDA-Public Use
  Company Number: DE-AUROBINDO-AUR-APL-2019-005404

PATIENT

DRUGS (1)
  1. RAMIPRIL-ISIS 5 MG TABLETS [Suspect]
     Active Substance: RAMIPRIL
     Indication: HYPERTENSION
     Dosage: 5 MILLIGRAM, DAILY
     Route: 048
     Dates: start: 20190122, end: 20190124

REACTIONS (4)
  - Product substitution issue [Unknown]
  - Blood pressure increased [Recovered/Resolved]
  - Hypertensive crisis [Recovered/Resolved]
  - Drug ineffective [Recovered/Resolved]

NARRATIVE: CASE EVENT DATE: 20190122
